FAERS Safety Report 10470650 (Version 2)
Quarter: 2014Q3

REPORT INFORMATION
  Report Type: Spontaneous
  Country: BR (occurrence: BR)
  Receive Date: 20140923
  Receipt Date: 20140923
  Transmission Date: 20150326
  Serious: Yes (Other)
  Sender: FDA-Public Use
  Company Number: BR-JNJFOC-20140823652

PATIENT
  Age: 34 Year
  Sex: Female

DRUGS (2)
  1. ORTHO EVRA [Suspect]
     Active Substance: ETHINYL ESTRADIOL\NORELGESTROMIN
     Indication: CONTRACEPTION
     Route: 062
     Dates: start: 201406, end: 20140904
  2. ORTHO EVRA [Suspect]
     Active Substance: ETHINYL ESTRADIOL\NORELGESTROMIN
     Indication: MENSTRUAL CYCLE MANAGEMENT
     Route: 062
     Dates: start: 201406, end: 20140904

REACTIONS (7)
  - Hyperplasia [Not Recovered/Not Resolved]
  - Endometrial hypertrophy [Not Recovered/Not Resolved]
  - Adenomyosis [Not Recovered/Not Resolved]
  - Genital pain [Not Recovered/Not Resolved]
  - Uterine spasm [Not Recovered/Not Resolved]
  - Inappropriate schedule of drug administration [Unknown]
  - Metrorrhagia [Not Recovered/Not Resolved]

NARRATIVE: CASE EVENT DATE: 201406
